FAERS Safety Report 4620504-6 (Version None)
Quarter: 2005Q1

REPORT INFORMATION
  Report Type: 
  Country: None (occurrence: None)
  Receive Date: 20050324
  Receipt Date: 20050315
  Transmission Date: 20050727
  Serious: Yes (Hospitalization)
  Sender: FDA-Public Use
  Company Number: 200510408BCC

PATIENT
  Age: 75 Year
  Sex: Female
  Weight: 77.1115 kg

DRUGS (8)
  1. ASPIRIN [Suspect]
     Indication: MYOCARDIAL INFARCTION
     Dosage: 81 MG, QD, ORAL
     Route: 048
     Dates: start: 20020901, end: 20040926
  2. ASPIRIN [Suspect]
     Indication: PROPHYLAXIS
     Dosage: 81 MG, QD, ORAL
     Route: 048
     Dates: start: 20020901, end: 20040926
  3. GLUCOPHAGE [Concomitant]
  4. DIOVAN [Concomitant]
  5. NORVASC [Concomitant]
  6. BETIMOL [Concomitant]
  7. BOTOX [Concomitant]
  8. PLAVIX [Concomitant]

REACTIONS (8)
  - ABDOMINAL DISTENSION [None]
  - ANAEMIA [None]
  - FLATULENCE [None]
  - GASTRIC POLYPS [None]
  - GASTRIC ULCER [None]
  - GASTRIC ULCER HAEMORRHAGE [None]
  - HYPOTENSION [None]
  - PAIN [None]
